FAERS Safety Report 7514152-8 (Version None)
Quarter: 2011Q2

REPORT INFORMATION
  Report Type: 
  Country: None (occurrence: None)
  Receive Date: 20110531
  Receipt Date: 20110531
  Transmission Date: 20111010
  Serious: Yes (Death, Hospitalization)
  Sender: FDA-Public Use
  Company Number: JP-B.I. PHARMACEUTICALS,INC./RIDGEFIELD-2011-BP-13030NB

PATIENT
  Sex: Female
  Weight: 35.5 kg

DRUGS (10)
  1. FRANDOL [Concomitant]
     Dosage: 60 MG
     Route: 048
     Dates: start: 20060220, end: 20110513
  2. PRADAXA [Suspect]
     Indication: ATRIAL FIBRILLATION
     Dosage: 220 MG
     Route: 048
     Dates: start: 20110408, end: 20110513
  3. VERAPAMIL HCL [Suspect]
     Indication: ATRIAL FIBRILLATION
     Dosage: 120 MG
     Route: 048
     Dates: start: 20110509, end: 20110513
  4. OLMESARTAN MEDOXOMIL [Concomitant]
     Dosage: 20 MG
     Route: 048
     Dates: start: 20060220, end: 20110513
  5. DIGOXIN [Concomitant]
     Dosage: 0.125 MG
     Route: 048
     Dates: start: 20080407, end: 20110513
  6. ADALAT CC [Concomitant]
     Dosage: 40 MG
     Route: 048
     Dates: start: 20060626, end: 20110513
  7. LASIX [Concomitant]
     Dosage: 20 MG
     Route: 048
     Dates: start: 20100223, end: 20110513
  8. ALDACTONE [Concomitant]
     Dosage: 25 MG
     Route: 048
     Dates: start: 20110208, end: 20110513
  9. CALBLOCK [Concomitant]
     Dosage: 16 MG
     Route: 048
     Dates: start: 20060220, end: 20110513
  10. PIMOBENDAN [Concomitant]
     Dosage: 1.25 MG
     Route: 048
     Dates: start: 20110208, end: 20110513

REACTIONS (9)
  - HEPATIC FUNCTION ABNORMAL [None]
  - HAEMORRHAGIC DIATHESIS [None]
  - BRADYCARDIA [None]
  - MULTI-ORGAN FAILURE [None]
  - ACIDOSIS [None]
  - MESENTERIC OCCLUSION [None]
  - BLOOD PRESSURE DECREASED [None]
  - RENAL FAILURE [None]
  - GASTROINTESTINAL NECROSIS [None]
